FAERS Safety Report 6895579-4 (Version None)
Quarter: 2010Q3

REPORT INFORMATION
  Report Type: 
  Country: None (occurrence: None)
  Receive Date: 20100802
  Receipt Date: 20100727
  Transmission Date: 20110219
  Serious: Yes (Death)
  Sender: FDA-Public Use
  Company Number: PHHY2010US49329

PATIENT
  Sex: Female

DRUGS (3)
  1. ZOMETA [Suspect]
  2. CHEMOTHERAPEUTICS NOS [Concomitant]
  3. HERCEPTIN [Concomitant]

REACTIONS (1)
  - DEATH [None]
